FAERS Safety Report 5584263-5 (Version None)
Quarter: 2008Q1

REPORT INFORMATION
  Report Type: 
  Country: None (occurrence: None)
  Receive Date: 20080108
  Receipt Date: 20080103
  Transmission Date: 20080703
  Serious: Yes (Other)
  Sender: FDA-Public Use
  Company Number: B0405294A

PATIENT
  Sex: Male

DRUGS (20)
  1. SEROXAT [Suspect]
     Route: 065
     Dates: start: 19990210
  2. AMITRIPTYLINE HCL [Concomitant]
     Route: 065
     Dates: start: 19950401
  3. FLUDROCORTISONE ACETATE [Concomitant]
     Route: 065
     Dates: start: 19961001, end: 20010101
  4. DICLOFENAC [Concomitant]
     Route: 065
  5. ZOLPIDEM [Concomitant]
     Route: 065
  6. FENOFIBRATE [Concomitant]
     Route: 065
  7. GABAPENTIN [Concomitant]
     Route: 065
  8. TADALAFIL [Concomitant]
     Route: 065
  9. DIAZEPAM [Concomitant]
     Route: 065
     Dates: start: 19950503
  10. METFORMIN HCL [Concomitant]
     Route: 065
  11. BISOPROLOL [Concomitant]
     Route: 065
  12. ASPIRIN [Concomitant]
     Route: 065
  13. FLUPENTHIXOL [Concomitant]
     Route: 065
  14. ATORVASTATIN [Concomitant]
     Route: 065
  15. BUPRENORPHINE HCL [Concomitant]
     Route: 065
  16. PINDOLOL [Concomitant]
     Route: 065
  17. TRAMADOL HCL [Concomitant]
     Route: 065
  18. VALIUM [Concomitant]
     Route: 065
  19. SIMVASTATIN [Concomitant]
     Route: 065
  20. IMIPRAMINE [Concomitant]
     Dates: start: 20000307

REACTIONS (12)
  - AGGRESSION [None]
  - AGITATION [None]
  - ANGER [None]
  - DEPRESSED MOOD [None]
  - EJACULATION FAILURE [None]
  - LETHARGY [None]
  - MALAISE [None]
  - NAUSEA [None]
  - PANIC ATTACK [None]
  - SENSORY DISTURBANCE [None]
  - SUICIDAL IDEATION [None]
  - WITHDRAWAL SYNDROME [None]
